FAERS Safety Report 7264387-7 (Version None)
Quarter: 2011Q1

REPORT INFORMATION
  Report Type: 
  Country: None (occurrence: None)
  Receive Date: 20110131
  Receipt Date: 20110124
  Transmission Date: 20110831
  Serious: No
  Sender: FDA-Public Use
  Company Number: US-BIOGENIDEC-2011BI002694

PATIENT
  Sex: Female

DRUGS (1)
  1. AVONEX [Suspect]
     Indication: MULTIPLE SCLEROSIS
     Route: 030
     Dates: start: 20110104

REACTIONS (5)
  - BALANCE DISORDER [None]
  - CHILLS [None]
  - MUSCULAR WEAKNESS [None]
  - PYREXIA [None]
  - FALL [None]
